FAERS Safety Report 9832896 (Version 8)
Quarter: 2014Q2

REPORT INFORMATION
  Report Type: Report from Study
  Country: JP (occurrence: JP)
  Receive Date: 20140121
  Receipt Date: 20140619
  Transmission Date: 20141212
  Serious: Yes (Death, Life-Threatening, Hospitalization, Other)
  Sender: FDA-Public Use
  Company Number: JP-ABBVIE-13P-087-1178109-00

PATIENT
  Age: 39 Year
  Sex: Male
  Weight: 62.3 kg

DRUGS (14)
  1. HUMIRA [Suspect]
     Indication: CROHN^S DISEASE
     Route: 058
     Dates: start: 20121115, end: 20121115
  2. HUMIRA [Suspect]
     Indication: COLITIS ULCERATIVE
     Dates: start: 20121130, end: 20121130
  3. HUMIRA [Suspect]
     Dates: start: 20121214, end: 20130919
  4. HUMIRA [Suspect]
     Dates: start: 20131031, end: 20131128
  5. IMURAN [Suspect]
     Indication: CROHN^S DISEASE
     Route: 048
     Dates: start: 20120418, end: 20120524
  6. IMURAN [Suspect]
     Route: 048
     Dates: start: 20120525, end: 20121115
  7. IMURAN [Suspect]
     Route: 048
     Dates: start: 20130925, end: 20131018
  8. MESALAZINE [Concomitant]
     Indication: CROHN^S DISEASE
     Route: 048
     Dates: end: 20130919
  9. MESALAZINE [Concomitant]
     Route: 048
     Dates: start: 20130925, end: 20131130
  10. BIFIDOBACTERIUM [Concomitant]
     Indication: CROHN^S DISEASE
     Route: 048
     Dates: end: 20130919
  11. FAMOTIDINE [Concomitant]
     Indication: CROHN^S DISEASE
     Route: 048
     Dates: end: 20130919
  12. FAMOTIDINE [Concomitant]
     Indication: GASTRITIS
     Route: 048
     Dates: start: 20130925, end: 20131130
  13. LACTOMIN [Concomitant]
     Indication: GASTROINTESTINAL DISORDER
  14. CLOSTRIDIUM BUTYRICUM [Concomitant]
     Indication: CROHN^S DISEASE
     Route: 048
     Dates: start: 20130925, end: 20131130

REACTIONS (9)
  - Rectal cancer metastatic [Fatal]
  - Metastases to liver [Fatal]
  - Metastases to lymph nodes [Fatal]
  - Hydronephrosis [Unknown]
  - Postrenal failure [Unknown]
  - Pancytopenia [Recovered/Resolved]
  - Cystitis haemorrhagic [Unknown]
  - Neutrophil count decreased [Recovered/Resolved]
  - Anal fistula [Unknown]
